FAERS Safety Report 8909273 (Version 2)
Quarter: 2013Q1

REPORT INFORMATION
  Report Type: Spontaneous
  Country: US (occurrence: None)
  Receive Date: 20121023
  Receipt Date: 20121205
  Transmission Date: 20140127
  Serious: Yes (Hospitalization)
  Sender: FDA-Public Use
  Company Number: 2012PROUSA02108

PATIENT
  Age: 73 Year
  Sex: Male
  Weight: 84.4 kg

DRUGS (10)
  1. PROVENGE (SIPULEUCEL-T) SUSPENSION, 250ML [Suspect]
     Indication: PROSTATE CANCER METASTATIC
     Route: 042
     Dates: start: 20120914, end: 20120914
  2. DILAUDID (HYDROMORPHONE HYDROCHLORIDE) INJECTION [Suspect]
  3. AMITRIPTYLINE HCL (AMITRIPTYLINE HYDROCHLORIDE) [Concomitant]
  4. HYDROXYZINE (HYDROXYZINE) [Concomitant]
  5. LUPRON (LEUPROELIN ACETATE) [Concomitant]
  6. LORAZEPAM (LORAZEPAM) [Concomitant]
  7. MULTIVITAMINS (ASCORBIC ACID, ERGOCALCIFEROL, FOLIC ACID, NICOTINAMIDE, PANTHENOL, RETINOL, RIBOFLAVIN, THIAMINE HYDROCHLORIDE) [Concomitant]
  8. OMEPRAZOLE (OMEPRAZOLE) [Concomitant]
  9. MIRALAX (MACROGOL 3350) [Concomitant]
  10. ENABLEX (DARIFENACIN HYDROBROMIDE) [Concomitant]

REACTIONS (2)
  - Diverticulitis [None]
  - Chills [None]
